FAERS Safety Report 17149221 (Version 1)
Quarter: 2019Q4

REPORT INFORMATION
  Report Type: Spontaneous
  Country: SE (occurrence: SE)
  Receive Date: 20191213
  Receipt Date: 20191213
  Transmission Date: 20200122
  Serious: Yes (Hospitalization)
  Sender: FDA-Public Use
  Company Number: SE-009507513-1912SWE004450

PATIENT
  Age: 45 Year
  Sex: Female

DRUGS (2)
  1. MIRTAZAPINE. [Suspect]
     Active Substance: MIRTAZAPINE
     Dosage: 450 MILLIGRAM
     Route: 048
     Dates: start: 20180715, end: 20180715
  2. PROPAVAN [Suspect]
     Active Substance: PROPIOMAZINE
     Dosage: 50 TABLETS
     Route: 048
     Dates: start: 20180715, end: 20180715

REACTIONS (3)
  - Intentional overdose [Unknown]
  - Coma scale abnormal [Unknown]
  - Intentional self-injury [Unknown]

NARRATIVE: CASE EVENT DATE: 20180715
